FAERS Safety Report 10593077 (Version 1)
Quarter: 2014Q4

REPORT INFORMATION
  Report Type: Spontaneous
  Country: GB (occurrence: GB)
  Receive Date: 20141119
  Receipt Date: 20141119
  Transmission Date: 20150529
  Serious: Yes (Other)
  Sender: FDA-Public Use
  Company Number: GB-BAYER-2014-170155

PATIENT
  Age: 44 Year
  Sex: Female
  Weight: 92.7 kg

DRUGS (3)
  1. MALARONE [Concomitant]
     Active Substance: ATOVAQUONE\PROGUANIL HYDROCHLORIDE
     Dosage: UNK
     Dates: start: 201408
  2. MIRENA [Suspect]
     Active Substance: LEVONORGESTREL
     Indication: CONTRACEPTION
     Dosage: 20 MCG/24HR, CONT
     Route: 015
     Dates: start: 20130310, end: 20141105
  3. MIRENA [Suspect]
     Active Substance: LEVONORGESTREL
     Indication: MENORRHAGIA

REACTIONS (4)
  - Menstruation irregular [Recovered/Resolved]
  - Abdominal distension [Unknown]
  - Acne [Unknown]
  - Discomfort [Unknown]

NARRATIVE: CASE EVENT DATE: 20130601
